FAERS Safety Report 17141680 (Version 1)
Quarter: 2019Q4

REPORT INFORMATION
  Report Type: Spontaneous
  Country: US (occurrence: US)
  Receive Date: 20191211
  Receipt Date: 20191211
  Transmission Date: 20200122
  Serious: No
  Sender: FDA-Public Use
  Company Number: US-SA-2019SA338582

PATIENT
  Age: 66 Year
  Sex: Female

DRUGS (1)
  1. PRALUENT [Suspect]
     Active Substance: ALIROCUMAB
     Dosage: 150 MG
     Dates: start: 20190802, end: 20190927

REACTIONS (6)
  - Abdominal pain upper [Unknown]
  - Chest pain [Unknown]
  - Cough [Unknown]
  - Gastrooesophageal reflux disease [Unknown]
  - Erythema [Unknown]
  - Flushing [Unknown]

NARRATIVE: CASE EVENT DATE: 201908
